FAERS Safety Report 8330928-1 (Version None)
Quarter: 2012Q2

REPORT INFORMATION
  Report Type: 
  Country: None (occurrence: None)
  Receive Date: 20120502
  Receipt Date: 20120426
  Transmission Date: 20120825
  Serious: Yes (Hospitalization)
  Sender: FDA-Public Use
  Company Number: US-PFIZER INC-2012104055

PATIENT
  Sex: Male
  Weight: 80.272 kg

DRUGS (8)
  1. INSULIN [Concomitant]
     Indication: DIABETES MELLITUS
     Dosage: 7 UNITS, 2 IN 1 D
     Route: 058
     Dates: start: 20030101
  2. RESTORIL [Concomitant]
     Indication: MYALGIA
     Dosage: 1 TAB, PRN
     Route: 048
     Dates: start: 20111112
  3. VICODIN [Suspect]
  4. NEBIVOLOL [Suspect]
     Dosage: UNK
     Route: 048
     Dates: start: 20111101
  5. TYLENOL (CAPLET) [Concomitant]
     Indication: HEADACHE
     Dosage: UNK
     Route: 048
     Dates: start: 19960101
  6. METOPROLOL [Concomitant]
     Indication: HYPERTENSION
     Dosage: UNK
     Route: 048
     Dates: start: 19910101, end: 20111030
  7. HYDROCHLOROTHIAZIDE [Concomitant]
     Indication: HYPERTENSION
     Dosage: 25 MG, 2X/DAY
     Route: 048
     Dates: start: 19910101, end: 20111030
  8. DILANTIN [Suspect]
     Indication: CEREBROVASCULAR ACCIDENT
     Dosage: 100 MG, 3X/DAY
     Route: 048

REACTIONS (1)
  - TOXICITY TO VARIOUS AGENTS [None]
